FAERS Safety Report 9230880 (Version 1)
Quarter: 2013Q1

REPORT INFORMATION
  Report Type: Spontaneous
  Country: US (occurrence: None)
  Receive Date: 20121031
  Receipt Date: 20121031
  Transmission Date: 20140127
  Serious: No
  Sender: FDA-Public Use
  Company Number: PHEH2012US013792

PATIENT
  Age: 64 Year
  Sex: Female

DRUGS (1)
  1. GILENYA (FTY) CAPSULE, 0.5MG [Suspect]
     Indication: MULTIPLE SCLEROSIS
     Route: 048
     Dates: start: 20120105

REACTIONS (8)
  - Visual impairment [None]
  - Fall [None]
  - Weight increased [None]
  - Asthenia [None]
  - Diarrhoea [None]
  - Back pain [None]
  - Vision blurred [None]
  - Drug ineffective [None]
